FAERS Safety Report 9746952 (Version 3)
Quarter: 2014Q1

REPORT INFORMATION
  Report Type: Report from Study
  Country: JP (occurrence: JP)
  Receive Date: 20131211
  Receipt Date: 20140114
  Transmission Date: 20141002
  Serious: Yes (Hospitalization)
  Sender: FDA-Public Use
  Company Number: JP-TAKEDA-2013TUS003081

PATIENT
  Sex: 0

DRUGS (7)
  1. FEBURIC [Suspect]
     Indication: HYPERURICAEMIA
     Dosage: 10 MG, QD
     Route: 048
     Dates: start: 20121018
  2. LUPRAC [Suspect]
     Indication: CARDIAC FAILURE CHRONIC
     Dosage: 4 MG, QD
     Route: 048
     Dates: start: 20121112, end: 20130319
  3. LASIX                              /00032601/ [Concomitant]
     Indication: CARDIAC FAILURE CHRONIC
     Dosage: 10 MG, QD
     Route: 048
     Dates: start: 20120820, end: 20121112
  4. ALDACTONE A [Concomitant]
     Indication: CARDIAC FAILURE CHRONIC
     Dosage: 12.5 MG, QD
     Route: 048
     Dates: start: 20120820, end: 20121112
  5. ARTIST [Concomitant]
     Indication: CARDIAC FAILURE CHRONIC
     Dosage: 2.5 MG, QD
     Route: 048
     Dates: start: 20120820, end: 20130319
  6. MYSLEE [Concomitant]
     Indication: INSOMNIA
     Dosage: 5 MG, QD
     Route: 048
     Dates: start: 20120820, end: 20130319
  7. MEVARICH [Concomitant]
     Indication: HYPERCHOLESTEROLAEMIA
     Dosage: 10 MG, QD
     Route: 048
     Dates: start: 20130117, end: 20130319

REACTIONS (2)
  - Cardiac failure chronic [Unknown]
  - Renal impairment [Not Recovered/Not Resolved]
